FAERS Safety Report 10472238 (Version 1)
Quarter: 2014Q3

REPORT INFORMATION
  Report Type: Spontaneous
  Country: US (occurrence: None)
  Receive Date: 20140923
  Receipt Date: 20140923
  Transmission Date: 20150326
  Serious: Yes (Other)
  Sender: FDA-Public Use
  Company Number: None

PATIENT
  Age: 46 Year
  Sex: Male
  Weight: 74.84 kg

DRUGS (1)
  1. TOPIRAMATE. [Suspect]
     Active Substance: TOPIRAMATE
     Indication: MIGRAINE PROPHYLAXIS
     Dosage: 25 MG/ 3 PILLS AT BEDTIME TAKEN BY MOUTH
     Route: 048

REACTIONS (3)
  - Rectal haemorrhage [None]
  - Anal fissure [None]
  - Paraesthesia [None]

NARRATIVE: CASE EVENT DATE: 20140922
